FAERS Safety Report 20978144 (Version 1)
Quarter: 2022Q2

REPORT INFORMATION
  Report Type: Spontaneous
  Country: FR (occurrence: FR)
  Receive Date: 20220618
  Receipt Date: 20220618
  Transmission Date: 20220721
  Serious: Yes (Hospitalization)
  Sender: FDA-Public Use
  Company Number: None

PATIENT
  Age: 61 Year
  Sex: Female
  Weight: 78 kg

DRUGS (2)
  1. CARBOPLATIN [Suspect]
     Active Substance: CARBOPLATIN
     Indication: Metastatic bronchial carcinoma
     Dates: start: 20220421
  2. PACLITAXEL [Suspect]
     Active Substance: PACLITAXEL
     Indication: Metastatic bronchial carcinoma
     Dates: start: 20220421

REACTIONS (6)
  - Paraesthesia [Unknown]
  - Nausea [Unknown]
  - Laryngeal discomfort [Unknown]
  - Cough [Unknown]
  - Electrocardiogram ST segment depression [Unknown]
  - Chest pain [Unknown]

NARRATIVE: CASE EVENT DATE: 20220421
